FAERS Safety Report 18229662 (Version 2)
Quarter: 2020Q4

REPORT INFORMATION
  Report Type: Report from Study
  Country: None (occurrence: US)
  Receive Date: 20200903
  Receipt Date: 20201005
  Transmission Date: 20210113
  Serious: Yes (Other)
  Sender: FDA-Public Use
  Company Number: US-ABBVIE-20K-163-3546366-00

PATIENT
  Sex: Male

DRUGS (2)
  1. HUMIRA [Suspect]
     Active Substance: ADALIMUMAB
     Route: 058
  2. HUMIRA [Suspect]
     Active Substance: ADALIMUMAB
     Indication: CROHN^S DISEASE
     Route: 058

REACTIONS (9)
  - Vomiting [Unknown]
  - Pain [Unknown]
  - Heat stroke [Unknown]
  - Crohn^s disease [Unknown]
  - Sleep disorder [Unknown]
  - Retching [Unknown]
  - Erythema [Unknown]
  - Abdominal distension [Recovering/Resolving]
  - Photosensitivity reaction [Unknown]
